FAERS Safety Report 19436565 (Version 4)
Quarter: 2021Q3

REPORT INFORMATION
  Report Type: Report from Study
  Country: KR (occurrence: KR)
  Receive Date: 20210618
  Receipt Date: 20210728
  Transmission Date: 20211014
  Serious: Yes (Hospitalization, Other)
  Sender: FDA-Public Use
  Company Number: KR-ASTRAZENECA-2021A494759

PATIENT
  Age: 23867 Day
  Sex: Male

DRUGS (9)
  1. OSIMERTINIB. [Suspect]
     Active Substance: OSIMERTINIB
     Indication: NON-SMALL CELL LUNG CANCER METASTATIC
     Route: 048
     Dates: start: 20210518, end: 20210607
  2. ENTELON [Concomitant]
     Indication: PULMONARY EMBOLISM
     Route: 048
     Dates: start: 20201104, end: 20210602
  3. BEAROBAN [Concomitant]
     Indication: PARONYCHIA
     Dates: start: 20210119
  4. RABIET [Concomitant]
     Indication: PROPHYLAXIS
     Route: 048
     Dates: start: 20210203
  5. LYRICA [Concomitant]
     Active Substance: PREGABALIN
     Indication: CANCER PAIN
     Route: 048
     Dates: start: 20210413, end: 20210603
  6. MYPOL [Concomitant]
     Indication: CANCER PAIN
     Route: 048
     Dates: start: 20210210, end: 20210603
  7. SAVOLITINIB. [Suspect]
     Active Substance: SAVOLITINIB
     Indication: NON-SMALL CELL LUNG CANCER METASTATIC
     Route: 048
     Dates: start: 20210518, end: 20210607
  8. TARGIN CR [Concomitant]
     Active Substance: NALOXONE HYDROCHLORIDE\OXYCODONE HYDROCHLORIDE
     Indication: CANCER PAIN
     Dosage: 10/5; 10 MG BID
     Route: 048
     Dates: start: 20210413
  9. TARGIN CR [Concomitant]
     Active Substance: NALOXONE HYDROCHLORIDE\OXYCODONE HYDROCHLORIDE
     Indication: CANCER PAIN
     Dosage: 20/10; 20 MG BID
     Route: 048
     Dates: start: 20210426

REACTIONS (2)
  - Drug-induced liver injury [Recovered/Resolved]
  - Dyspnoea [Recovering/Resolving]

NARRATIVE: CASE EVENT DATE: 20210529
